FAERS Safety Report 25550102 (Version 2)
Quarter: 2025Q3

REPORT INFORMATION
  Report Type: Report from Study
  Country: JP (occurrence: JP)
  Receive Date: 20250714
  Receipt Date: 20250723
  Transmission Date: 20251020
  Serious: Yes (Other)
  Sender: ALEXION PHARMACEUTICALS
  Company Number: JP-ASTRAZENECA-202507JPN009309JP

PATIENT
  Age: 60 Year
  Sex: Male

DRUGS (1)
  1. OSIMERTINIB [Suspect]
     Active Substance: OSIMERTINIB
     Indication: Non-small cell lung cancer

REACTIONS (3)
  - Ventricular arrhythmia [Unknown]
  - Nail disorder [Unknown]
  - Dry skin [Unknown]

NARRATIVE: CASE EVENT DATE: 20240621
